FAERS Safety Report 7410629-4 (Version None)
Quarter: 2011Q2

REPORT INFORMATION
  Report Type: 
  Country: None (occurrence: None)
  Receive Date: 20110413
  Receipt Date: 20110329
  Transmission Date: 20111010
  Serious: Yes (Death)
  Sender: FDA-Public Use
  Company Number: US-CELGENEUS-163-21880-11031258

PATIENT
  Sex: Male

DRUGS (6)
  1. SOTALOL HCL [Concomitant]
     Indication: ARRHYTHMIA
     Route: 048
  2. REVLIMID [Suspect]
     Indication: MULTIPLE MYELOMA
     Dosage: 25 MILLIGRAM
     Route: 048
     Dates: start: 20101201
  3. REVLIMID [Suspect]
     Dosage: 15 MILLIGRAM
     Route: 048
     Dates: start: 20110201, end: 20110301
  4. FLECAINIDE ACETATE [Concomitant]
     Indication: ARRHYTHMIA
     Route: 048
  5. VICODIN [Concomitant]
     Indication: PAIN
     Route: 048
     Dates: start: 20101101, end: 20110201
  6. SENNA [Concomitant]
     Indication: CONSTIPATION
     Route: 048
     Dates: start: 20101101

REACTIONS (1)
  - MULTIPLE MYELOMA [None]
